FAERS Safety Report 7475769-2 (Version None)
Quarter: 2011Q2

REPORT INFORMATION
  Report Type: 
  Country: None (occurrence: None)
  Receive Date: 20110512
  Receipt Date: 20110502
  Transmission Date: 20111010
  Serious: Yes (Disabling, Other)
  Sender: FDA-Public Use
  Company Number: PHEH2007US02889

PATIENT
  Sex: Female
  Weight: 80.726 kg

DRUGS (13)
  1. TAMOXIFEN [Concomitant]
     Dosage: 20 MG, QD
     Route: 048
  2. PAXIL [Concomitant]
     Dosage: 20 MG, QD
     Route: 048
  3. ZOMETA [Suspect]
     Indication: METASTASES TO BONE
     Dosage: 4 MG, UNK
     Dates: start: 20021101, end: 20050901
  4. AMBIEN [Concomitant]
  5. ASPIRIN [Concomitant]
  6. CALCIUM [Concomitant]
  7. LUPRON [Concomitant]
  8. ORAL CONTRACEPTIVE NOS [Concomitant]
  9. MULTIVIT [Concomitant]
  10. WELLBUTRIN [Concomitant]
     Dosage: 100 MG, TID
     Route: 048
  11. RESTORIL [Concomitant]
     Dosage: 15 MG, QHS
     Route: 048
  12. XANAX [Concomitant]
     Dosage: 0.5 MG, TID
     Route: 048
  13. STEROIDS NOS [Concomitant]
     Dosage: UNK
     Dates: start: 20050101

REACTIONS (44)
  - OROANTRAL FISTULA [None]
  - PERIODONTAL DISEASE [None]
  - PAIN [None]
  - METASTASES TO BONE [None]
  - SKIN HYPERPIGMENTATION [None]
  - INTERVERTEBRAL DISC DEGENERATION [None]
  - BIOPSY BONE [None]
  - LOOSE TOOTH [None]
  - POSITRON EMISSION TOMOGRAM ABNORMAL [None]
  - DECREASED INTEREST [None]
  - SWELLING [None]
  - MYALGIA [None]
  - ERYTHEMA [None]
  - TEMPOROMANDIBULAR JOINT SYNDROME [None]
  - GENERAL PHYSICAL HEALTH DETERIORATION [None]
  - ANXIETY [None]
  - PYREXIA [None]
  - SINUS CONGESTION [None]
  - SINUS HEADACHE [None]
  - OSTEOMYELITIS [None]
  - GINGIVAL INFECTION [None]
  - HEADACHE [None]
  - ORAL PAIN [None]
  - INTERVERTEBRAL DISC SPACE NARROWING [None]
  - ANAEMIA [None]
  - DYSGEUSIA [None]
  - BONE DISORDER [None]
  - LYMPHOEDEMA [None]
  - FATIGUE [None]
  - SPINAL OSTEOARTHRITIS [None]
  - OSTEONECROSIS OF JAW [None]
  - TOOTH ABSCESS [None]
  - STRESS URINARY INCONTINENCE [None]
  - OEDEMA PERIPHERAL [None]
  - ARTHRALGIA [None]
  - DEPRESSION [None]
  - VITAMIN B12 DEFICIENCY [None]
  - PAIN IN JAW [None]
  - ORAL DISCHARGE [None]
  - BONE LOSS [None]
  - OSTEITIS [None]
  - TOOTH IMPACTED [None]
  - DENTAL FISTULA [None]
  - UPPER RESPIRATORY TRACT INFECTION [None]
